FAERS Safety Report 6070302-4 (Version None)
Quarter: 2009Q1

REPORT INFORMATION
  Report Type: 
  Country: None (occurrence: None)
  Receive Date: 20090209
  Receipt Date: 20090128
  Transmission Date: 20090719
  Serious: Yes (Other)
  Sender: FDA-Public Use
  Company Number: SE-ELI_LILLY_AND_COMPANY-SE200901004952

PATIENT
  Sex: Female

DRUGS (12)
  1. HUMALOG [Suspect]
     Dosage: 1 D/F, UNK
     Route: 058
  2. LEVEMIR [Concomitant]
     Dosage: 1 D/F, UNK
     Route: 058
  3. SIMVASTATIN SANDOZ [Concomitant]
     Dosage: 20 MG, UNK
  4. LEVOTHYROXINE SODIUM [Concomitant]
     Dosage: 75 UG, UNK
  5. TRYPTIZOL [Concomitant]
     Dosage: 25 MG, UNK
  6. ELOCON [Concomitant]
  7. ZOFRAN [Concomitant]
     Dosage: 4 MG, UNK
  8. VENTOLIN [Concomitant]
     Dosage: 0.2 MG, UNK
  9. PLAVIX [Concomitant]
  10. ATACAND [Concomitant]
     Dosage: 4 MG, UNK
  11. SERETIDE DISKUS FORTE [Concomitant]
     Dosage: 50 UG, UNK
  12. AERIUS [Concomitant]

REACTIONS (4)
  - CONVULSION [None]
  - HYPOGLYCAEMIA [None]
  - SHOCK HYPOGLYCAEMIC [None]
  - UPPER RESPIRATORY TRACT INFECTION [None]
